FAERS Safety Report 4715082-7 (Version None)
Quarter: 2005Q3

REPORT INFORMATION
  Report Type: 
  Country: None (occurrence: None)
  Receive Date: 20050715
  Receipt Date: 20050518
  Transmission Date: 20060218
  Serious: Yes (Hospitalization)
  Sender: FDA-Public Use
  Company Number: FR-SANOFI-SYNTHELABO-A02200501318

PATIENT
  Age: 79 Year
  Sex: Female
  Weight: 70 kg

DRUGS (15)
  1. PLAVIX [Suspect]
     Route: 048
     Dates: start: 20040202, end: 20050329
  2. KARDEGIC [Suspect]
     Route: 048
  3. ELISOR [Suspect]
     Route: 048
     Dates: start: 20050210, end: 20050329
  4. SPECIAFOLDINE [Suspect]
     Route: 048
     Dates: start: 20050210, end: 20050329
  5. CORTANCYL [Concomitant]
     Indication: RHEUMATOID ARTHRITIS
     Route: 048
     Dates: start: 19920101, end: 20050330
  6. SULFASALAZINE [Concomitant]
     Indication: RHEUMATOID ARTHRITIS
     Route: 048
     Dates: start: 19920101, end: 20050329
  7. DOLIPRANE [Concomitant]
     Route: 048
  8. MOVICOL [Concomitant]
  9. CALCIUM GLUCONATE [Concomitant]
     Route: 048
  10. POTASSIUM CHLORIDE [Concomitant]
     Route: 048
  11. CATACOL [Concomitant]
     Dosage: UNK
     Route: 047
  12. OMEPRAZOLE [Concomitant]
     Route: 048
  13. RAMIPRIL [Concomitant]
     Route: 048
  14. LASIX [Concomitant]
     Route: 048
  15. NICARDIPINE HCL [Concomitant]
     Route: 048

REACTIONS (2)
  - CHOLESTASIS [None]
  - HERPES SIMPLEX SEROLOGY POSITIVE [None]
